FAERS Safety Report 11828185 (Version 2)
Quarter: 2016Q1

REPORT INFORMATION
  Report Type: Spontaneous
  Country: US (occurrence: US)
  Receive Date: 20151211
  Receipt Date: 20160108
  Transmission Date: 20160525
  Serious: No
  Sender: FDA-Public Use
  Company Number: US-GLAXOSMITHKLINE-US2015174717

PATIENT
  Age: 80 Year
  Sex: Male

DRUGS (7)
  1. BREO ELLIPTA [Suspect]
     Active Substance: FLUTICASONE FUROATE\VILANTEROL TRIFENATATE
     Dosage: 100/25 MCG,1 PUFF(S), U
     Route: 055
  2. IPRATROPIUM BROMIDE/ALBUTEROL SULFATE NEBULISER SOLUTION [Concomitant]
  3. TAMSULOSINE [Concomitant]
     Active Substance: TAMSULOSIN HYDROCHLORIDE
  4. WARFARIN [Concomitant]
     Active Substance: WARFARIN
  5. XANAX [Concomitant]
     Active Substance: ALPRAZOLAM
  6. ALBUTEROL NEBULIZER [Concomitant]
     Active Substance: ALBUTEROL
  7. BREO ELLIPTA [Suspect]
     Active Substance: FLUTICASONE FUROATE\VILANTEROL TRIFENATATE
     Indication: CHRONIC OBSTRUCTIVE PULMONARY DISEASE
     Dosage: 200/25 MCG,1 PUFF(S), QD
     Route: 055
     Dates: start: 201512

REACTIONS (6)
  - Pyrexia [Unknown]
  - Cough [Unknown]
  - Secretion discharge [Unknown]
  - Hypoaesthesia oral [Recovered/Resolved]
  - Productive cough [Unknown]
  - Chills [Unknown]

NARRATIVE: CASE EVENT DATE: 201512
